FAERS Safety Report 7690315-6 (Version None)
Quarter: 2011Q3

REPORT INFORMATION
  Report Type: 
  Country: None (occurrence: None)
  Receive Date: 20110817
  Receipt Date: 20110817
  Transmission Date: 20111222
  Serious: Yes (Hospitalization)
  Sender: FDA-Public Use
  Company Number: None

PATIENT
  Age: 41 Year
  Sex: Female
  Weight: 50 kg

DRUGS (1)
  1. TYLENOL PM [Suspect]
     Dates: start: 20110419

REACTIONS (2)
  - MARITAL PROBLEM [None]
  - INCORRECT DOSE ADMINISTERED [None]
